FAERS Safety Report 4329101-3 (Version None)
Quarter: 2004Q1

REPORT INFORMATION
  Report Type: 
  Country: None (occurrence: None)
  Receive Date: 20040329
  Receipt Date: 20031218
  Transmission Date: 20041129
  Serious: No
  Sender: FDA-Public Use
  Company Number: 03P-163-0245129-00

PATIENT
  Age: 69 Year
  Sex: Female

DRUGS (12)
  1. HUMIRA [Suspect]
     Indication: RHEUMATOID ARTHRITIS
     Dosage: 40 MG, 1 IN 2 WK, SUBCUTANEOUS
     Route: 058
     Dates: start: 20030101
  2. METHOTREXATE [Concomitant]
  3. BUCINDOLOL HYDROCHLORIDE [Concomitant]
  4. PREDNISONE [Concomitant]
  5. ALENDRONATE SODIUM [Concomitant]
  6. CALCIUM [Concomitant]
  7. POTASSIUM [Concomitant]
  8. FUROSEMIDE [Concomitant]
  9. PROPANOLOL HYDROCHLORIDE [Concomitant]
  10. AMLODIPINE BESYLATE [Concomitant]
  11. ASPIRIN [Concomitant]
  12. ACETAMINOPHEN [Concomitant]

REACTIONS (1)
  - INJECTION SITE STINGING [None]
